FAERS Safety Report 5404437-3 (Version None)
Quarter: 2007Q3

REPORT INFORMATION
  Report Type: 
  Country: None (occurrence: None)
  Receive Date: 20070711
  Receipt Date: 20061003
  Transmission Date: 20080115
  Serious: Yes (Other)
  Sender: FDA-Public Use
  Company Number: 2006100009

PATIENT
  Sex: Male

DRUGS (1)
  1. SOMA [Suspect]
     Indication: ILL-DEFINED DISORDER

REACTIONS (1)
  - ANAPHYLACTIC REACTION [None]
